FAERS Safety Report 4881112-5 (Version None)
Quarter: 2005Q4

REPORT INFORMATION
  Report Type: 
  Country: None (occurrence: None)
  Receive Date: 20051223
  Receipt Date: 20050909
  Transmission Date: 20060501
  Serious: No
  Sender: FDA-Public Use
  Company Number: 05P-163-0310612-00

PATIENT
  Age: 28 Year
  Sex: Female
  Weight: 121 kg

DRUGS (2)
  1. HUMIRA [Suspect]
     Indication: RHEUMATOID ARTHRITIS
     Dosage: 40 MG, 1 IN 1 WK, SUBCUTANEOUS
     Route: 058
     Dates: start: 20030101, end: 20050601
  2. IBUPROFEN [Concomitant]

REACTIONS (3)
  - FIBROMYALGIA [None]
  - HEADACHE [None]
  - INJECTION SITE URTICARIA [None]
